FAERS Safety Report 17439936 (Version 1)
Quarter: 2020Q1

REPORT INFORMATION
  Report Type: Spontaneous
  Country: MY (occurrence: MY)
  Receive Date: 20200220
  Receipt Date: 20200220
  Transmission Date: 20200409
  Serious: Yes (Other)
  Sender: FDA-Public Use
  Company Number: MY-HRAPH01-201900325

PATIENT
  Age: 36 Year
  Sex: Female

DRUGS (1)
  1. ELLAONE [Suspect]
     Active Substance: ULIPRISTAL ACETATE
     Indication: POST COITAL CONTRACEPTION

REACTIONS (4)
  - Unintended pregnancy [Recovered/Resolved]
  - Incorrect dosage administered [Recovered/Resolved]
  - Abortion spontaneous [Recovered/Resolved]
  - Off label use [Recovered/Resolved]

NARRATIVE: CASE EVENT DATE: 201906
